FAERS Safety Report 6018525-4 (Version None)
Quarter: 2008Q4

REPORT INFORMATION
  Report Type: 
  Country: None (occurrence: None)
  Receive Date: 20081223
  Receipt Date: 20081211
  Transmission Date: 20090506
  Serious: Yes (Other)
  Sender: FDA-Public Use
  Company Number: JP-PFIZER INC-2008153493

PATIENT

DRUGS (2)
  1. ZOLOFT [Suspect]
     Route: 048
  2. MEDICON [Suspect]
     Indication: BRONCHITIS

REACTIONS (5)
  - BRONCHITIS [None]
  - FALL [None]
  - GAIT DISTURBANCE [None]
  - HEAD INJURY [None]
  - TREMOR [None]
